FAERS Safety Report 4842919-3 (Version None)
Quarter: 2005Q4

REPORT INFORMATION
  Report Type: 
  Country: None (occurrence: None)
  Receive Date: 20051130
  Receipt Date: 20051121
  Transmission Date: 20060501
  Serious: Yes (Hospitalization)
  Sender: FDA-Public Use
  Company Number: 219724

PATIENT
  Age: 67 Year
  Sex: Male

DRUGS (1)
  1. MABTHERA(RITUXIMAB) CONC FOR SOLUTION FOR INFUSION [Suspect]
     Indication: LYMPHOMA
     Dosage: 375 MG/M2, 1/MONTH, INTRAVENOUS
     Route: 042
     Dates: start: 20050201, end: 20050901

REACTIONS (3)
  - DRUG INEFFECTIVE [None]
  - LEUKOPENIA [None]
  - NEUTROPHIL COUNT DECREASED [None]
